FAERS Safety Report 22661722 (Version 1)
Quarter: 2023Q2

REPORT INFORMATION
  Report Type: Spontaneous
  Country: JP (occurrence: JP)
  Receive Date: 20230630
  Receipt Date: 20230630
  Transmission Date: 20230721
  Serious: Yes (Other)
  Sender: FDA-Public Use
  Company Number: JP-PFIZER INC-202300233060

PATIENT
  Age: 77 Year
  Sex: Male

DRUGS (2)
  1. GEMCITABINE HYDROCHLORIDE [Suspect]
     Active Substance: GEMCITABINE HYDROCHLORIDE
  2. CARBOPLATIN [Suspect]
     Active Substance: CARBOPLATIN

REACTIONS (1)
  - Leukopenia [Unknown]
